FAERS Safety Report 7677734-9 (Version None)
Quarter: 2011Q3

REPORT INFORMATION
  Report Type: 
  Country: None (occurrence: None)
  Receive Date: 20110811
  Receipt Date: 20110801
  Transmission Date: 20111222
  Serious: Yes (Hospitalization)
  Sender: FDA-Public Use
  Company Number: US-JNJFOC-20070400364

PATIENT
  Sex: Female

DRUGS (4)
  1. AZATHIOPRINE [Concomitant]
  2. INFLIXIMAB [Suspect]
     Indication: INFLAMMATORY BOWEL DISEASE
     Route: 042
     Dates: start: 20040116, end: 20060914
  3. PREDNISONE [Concomitant]
  4. HUMIRA [Concomitant]
     Route: 058

REACTIONS (1)
  - CROHN'S DISEASE [None]
